FAERS Safety Report 21796355 (Version 3)
Quarter: 2024Q1

REPORT INFORMATION
  Report Type: Spontaneous
  Country: JP (occurrence: JP)
  Receive Date: 20221229
  Receipt Date: 20240214
  Transmission Date: 20240409
  Serious: Yes (Hospitalization)
  Sender: FDA-Public Use
  Company Number: JP-PAIPHARMA-2022-JP-000585

PATIENT
  Age: 36 Year
  Sex: Male

DRUGS (4)
  1. PREDNISOLONE SODIUM PHOSPHATE [Suspect]
     Active Substance: PREDNISOLONE SODIUM PHOSPHATE
     Indication: Tubulointerstitial nephritis
     Dosage: 5MG DAILY: 30 MG DAILY
  2. EVEROLIMUS [Concomitant]
     Active Substance: EVEROLIMUS
     Dosage: 1.5 MG PER DAY
  3. TACROLIMUS [Concomitant]
     Active Substance: TACROLIMUS
     Dosage: 5 MG DAILY
  4. METHYLPREDNISOLONE [Suspect]
     Active Substance: METHYLPREDNISOLONE
     Indication: Tubulointerstitial nephritis
     Dosage: 500 MG
     Route: 042

REACTIONS (1)
  - Scleroderma renal crisis [Not Recovered/Not Resolved]
